FAERS Safety Report 11839240 (Version 3)
Quarter: 2018Q2

REPORT INFORMATION
  Report Type: Spontaneous
  Country: IT (occurrence: IT)
  Receive Date: 20151216
  Receipt Date: 20180524
  Transmission Date: 20180711
  Serious: Yes (Hospitalization, Other)
  Sender: FDA-Public Use
  Company Number: IT-LUPIN PHARMACEUTICALS INC.-2015-04052

PATIENT
  Age: 30 Year
  Sex: Female

DRUGS (7)
  1. FLUPHENAZINE DECANOATE. [Suspect]
     Active Substance: FLUPHENAZINE DECANOATE
     Dosage: 25 MG, EVERY 21 DAYS
     Route: 030
     Dates: start: 201310, end: 201312
  2. CLONAZEPAM. [Concomitant]
     Active Substance: CLONAZEPAM
     Indication: BIPOLAR DISORDER
     Dosage: 1 MG,QD,
     Route: 065
  3. HALOPERIDOL. [Suspect]
     Active Substance: HALOPERIDOL
     Indication: BIPOLAR DISORDER
     Dosage: 4 MG,TID,
     Route: 065
     Dates: start: 2005, end: 201312
  4. QUETIAPINE. [Suspect]
     Active Substance: QUETIAPINE
     Indication: BIPOLAR DISORDER
     Dosage: 300 MG,TID,
     Route: 065
     Dates: start: 2005, end: 201312
  5. LORAZEPAM. [Concomitant]
     Active Substance: LORAZEPAM
     Indication: BIPOLAR DISORDER
     Dosage: 2.5 MG,QD,
     Route: 065
  6. FLUPHENAZINE DECANOATE. [Suspect]
     Active Substance: FLUPHENAZINE DECANOATE
     Indication: BIPOLAR DISORDER
     Dosage: 25 MG, EVERY MONTH
     Route: 030
     Dates: start: 2005, end: 201312
  7. PALIPERIDONE. [Suspect]
     Active Substance: PALIPERIDONE
     Indication: BIPOLAR DISORDER
     Dosage: 6 MG,QD,
     Route: 065
     Dates: start: 201310, end: 201312

REACTIONS (1)
  - Neuroleptic malignant syndrome [Recovered/Resolved with Sequelae]

NARRATIVE: CASE EVENT DATE: 201310
